FAERS Safety Report 18409798 (Version 1)
Quarter: 2020Q4

REPORT INFORMATION
  Report Type: Spontaneous
  Country: FR (occurrence: FR)
  Receive Date: 20201021
  Receipt Date: 20201021
  Transmission Date: 20210114
  Serious: Yes (Hospitalization)
  Sender: FDA-Public Use
  Company Number: FR-ACCORD-205708

PATIENT
  Age: 37 Year
  Sex: Male
  Weight: 65 kg

DRUGS (4)
  1. QUETIAPINE. [Suspect]
     Active Substance: QUETIAPINE
     Route: 048
     Dates: start: 20200828, end: 20200828
  2. LOXAPAC [Suspect]
     Active Substance: LOXAPINE
     Dosage: STRENGTH-50 MG
     Route: 048
     Dates: start: 20200828, end: 20200828
  3. RISPERIDONE. [Suspect]
     Active Substance: RISPERIDONE
     Route: 048
     Dates: start: 20200828, end: 20200828
  4. SERESTA [Suspect]
     Active Substance: OXAZEPAM
     Dosage: STRENGTH-50 MG, SCORED TABLET
     Route: 048
     Dates: start: 20200828, end: 20200828

REACTIONS (4)
  - Psychomotor skills impaired [Recovered/Resolved]
  - Wrong patient received product [Unknown]
  - Product administration error [Unknown]
  - Sinus tachycardia [Recovered/Resolved]

NARRATIVE: CASE EVENT DATE: 20200828
